FAERS Safety Report 18971702 (Version 1)
Quarter: 2021Q1

REPORT INFORMATION
  Report Type: Other
  Country: IT (occurrence: IT)
  Receive Date: 20210304
  Receipt Date: 20210304
  Transmission Date: 20210420
  Serious: Yes (Hospitalization)
  Sender: FDA-Public Use
  Company Number: IT-CELLTRION INC.-2021IT002448

PATIENT

DRUGS (8)
  1. FERRO?GRAD [Concomitant]
     Active Substance: FERROUS SULFATE
  2. ALLOPURINOL. [Concomitant]
     Active Substance: ALLOPURINOL
  3. ARANESP 10 MICROGRAMS SOLUTION FOR INJECTION IN PRE?FILLED SYRINGE [Concomitant]
  4. RITUXIMAB (UNKNOWN) [Suspect]
     Active Substance: RITUXIMAB
     Indication: LYMPHOMA
     Dosage: 738.8 MG, EVERY CYCLE
     Route: 042
     Dates: start: 20181031, end: 20190318
  5. BACTRIM [Concomitant]
     Active Substance: SULFAMETHOXAZOLE\TRIMETHOPRIM
  6. ACICLOVIR [Concomitant]
     Active Substance: ACYCLOVIR
  7. BENDAMUSTINE HYDROCHLORIDE. [Suspect]
     Active Substance: BENDAMUSTINE HYDROCHLORIDE
     Indication: LYMPHOMA
     Dosage: 177.3 MG, EVERY CYCLE
     Route: 042
     Dates: start: 20181031, end: 20190318
  8. SOTALOL. [Concomitant]
     Active Substance: SOTALOL

REACTIONS (3)
  - Dyspnoea exertional [Recovering/Resolving]
  - COVID-19 pneumonia [Recovering/Resolving]
  - Hyperpyrexia [Recovering/Resolving]

NARRATIVE: CASE EVENT DATE: 20200809
